FAERS Safety Report 6257645-6 (Version None)
Quarter: 2009Q3

REPORT INFORMATION
  Report Type: 
  Country: None (occurrence: None)
  Receive Date: 20090706
  Receipt Date: 20090622
  Transmission Date: 20100115
  Serious: Yes (Other)
  Sender: FDA-Public Use
  Company Number: KR-MYLANLABS-2009S1010959

PATIENT
  Sex: Male

DRUGS (7)
  1. DEXAMETHASONE [Suspect]
     Indication: ACUTE MYELOID LEUKAEMIA
  2. CYTARABINE [Suspect]
     Indication: ACUTE MYELOID LEUKAEMIA
  3. THIOGUANINE [Suspect]
     Indication: ACUTE MYELOID LEUKAEMIA
  4. DAUNORUBICIN HCL [Suspect]
     Indication: ACUTE MYELOID LEUKAEMIA
  5. ETOPOSIDE [Suspect]
     Indication: ACUTE MYELOID LEUKAEMIA
  6. BUSULFAN [Suspect]
     Indication: ACUTE MYELOID LEUKAEMIA
  7. CYCLOPHOSPHAMIDE [Suspect]
     Indication: ACUTE MYELOID LEUKAEMIA

REACTIONS (1)
  - MUCOEPIDERMOID CARCINOMA [None]
